FAERS Safety Report 25936191 (Version 2)
Quarter: 2025Q4

REPORT INFORMATION
  Report Type: Report from Study
  Country: PE (occurrence: PE)
  Receive Date: 20251017
  Receipt Date: 20251113
  Transmission Date: 20260118
  Serious: Yes (Hospitalization, Other)
  Sender: BIOVITRUM
  Company Number: PE-AstraZeneca-CH-00931475A

PATIENT
  Age: 7 Month
  Sex: Male

DRUGS (3)
  1. PALIVIZUMAB [Suspect]
     Active Substance: PALIVIZUMAB
     Indication: Antiviral prophylaxis
     Dosage: 15 MILLIGRAM/KILOGRAM, QMONTH
     Route: 030
     Dates: start: 20250308
  2. PALIVIZUMAB [Suspect]
     Active Substance: PALIVIZUMAB
     Dosage: 15 MILLIGRAM/KILOGRAM, QMONTH
     Route: 030
     Dates: start: 20250422
  3. PALIVIZUMAB [Suspect]
     Active Substance: PALIVIZUMAB
     Dosage: 15 MILLIGRAM/KILOGRAM, QMONTH
     Route: 030
     Dates: start: 20250627

REACTIONS (2)
  - Productive cough [Not Recovered/Not Resolved]
  - Bronchiolitis [Not Recovered/Not Resolved]

NARRATIVE: CASE EVENT DATE: 20250801
